FAERS Safety Report 4526173-8 (Version None)
Quarter: 2004Q4

REPORT INFORMATION
  Report Type: 
  Country: None (occurrence: None)
  Receive Date: 20041213
  Receipt Date: 20041213
  Transmission Date: 20050328
  Serious: No
  Sender: FDA-Public Use
  Company Number: None

PATIENT
  Sex: Female
  Weight: 17.2367 kg

DRUGS (18)
  1. GAMMAGARD [Suspect]
     Indication: IMMUNODEFICIENCY COMMON VARIABLE
     Dosage: 15 GRAMS   IV   INTRAVENOU
     Route: 042
     Dates: start: 20040326, end: 20041212
  2. GAMMAGARD [Suspect]
  3. GAMMAGARD [Suspect]
  4. GAMMAGARD [Suspect]
  5. GAMMAGARD [Suspect]
  6. GAMMAGARD [Suspect]
  7. GAMMAGARD [Suspect]
  8. GAMMAGARD [Suspect]
  9. GAMMAGARD [Suspect]
  10. GAMMAGARD [Suspect]
  11. GAMMAGARD [Suspect]
  12. GAMMAGARD [Suspect]
  13. GAMMAGARD [Suspect]
  14. GAMMAGARD [Suspect]
  15. GAMMAGARD [Suspect]
  16. GAMMAGARD [Suspect]
  17. GAMMAGARD [Suspect]
  18. GAMMAGARD [Suspect]

REACTIONS (1)
  - HEPATITIS C POSITIVE [None]
